FAERS Safety Report 7635673-3 (Version None)
Quarter: 2011Q3

REPORT INFORMATION
  Report Type: 
  Country: None (occurrence: None)
  Receive Date: 20110726
  Receipt Date: 20110719
  Transmission Date: 20111222
  Serious: Yes (Hospitalization)
  Sender: FDA-Public Use
  Company Number: PHHY2011JP43052

PATIENT
  Sex: Male

DRUGS (2)
  1. MENEST [Concomitant]
     Dosage: UNK
     Route: 048
  2. COMTAN [Suspect]
     Dosage: UNK
     Route: 048

REACTIONS (1)
  - DISEASE PROGRESSION [None]
